FAERS Safety Report 7799090-8 (Version None)
Quarter: 2011Q4

REPORT INFORMATION
  Report Type: 
  Country: None (occurrence: None)
  Receive Date: 20111006
  Receipt Date: 20110929
  Transmission Date: 20120403
  Serious: Yes (Hospitalization, Other)
  Sender: FDA-Public Use
  Company Number: JP-PFIZER INC-2011232951

PATIENT
  Sex: Male

DRUGS (2)
  1. LYRICA [Suspect]
     Dosage: 300 MG/DAY
     Route: 048
  2. LYRICA [Suspect]
     Indication: HYPOAESTHESIA
     Dosage: 600 MG/DAY
     Route: 048

REACTIONS (3)
  - NERVOUS SYSTEM DISORDER [None]
  - HYPOAESTHESIA [None]
  - ASTHENIA [None]
